FAERS Safety Report 14505905 (Version 1)
Quarter: 2018Q1

REPORT INFORMATION
  Report Type: Spontaneous
  Country: US (occurrence: US)
  Receive Date: 20180207
  Receipt Date: 20180207
  Transmission Date: 20180509
  Serious: Yes (Disabling)
  Sender: FDA-Public Use
  Company Number: None

PATIENT
  Age: 75 Year
  Sex: Male
  Weight: 105.75 kg

DRUGS (11)
  1. ADVIL [Concomitant]
     Active Substance: IBUPROFEN
  2. ALEVE [Concomitant]
     Active Substance: NAPROXEN SODIUM
  3. MULTIVIT [Concomitant]
     Active Substance: VITAMINS
  4. ALDACTONE [Concomitant]
     Active Substance: SPIRONOLACTONE
  5. ZETIA [Concomitant]
     Active Substance: EZETIMIBE
  6. ASA [Concomitant]
     Active Substance: ASPIRIN
  7. TYLENOL [Concomitant]
     Active Substance: ACETAMINOPHEN
  8. REPATHA [Suspect]
     Active Substance: EVOLOCUMAB
     Indication: LOW DENSITY LIPOPROTEIN INCREASED
     Dosage: ?          QUANTITY:1 INJECTION(S);OTHER FREQUENCY:2 /MONTH;?
     Route: 030
     Dates: end: 20180122
  9. ATENOLOL. [Concomitant]
     Active Substance: ATENOLOL
  10. MICARDIS [Concomitant]
     Active Substance: TELMISARTAN
  11. PAXIL CR [Concomitant]
     Active Substance: PAROXETINE HYDROCHLORIDE

REACTIONS (7)
  - Arthralgia [None]
  - Nasopharyngitis [None]
  - Diarrhoea [None]
  - Cold sweat [None]
  - Asthenia [None]
  - Fatigue [None]
  - Back pain [None]

NARRATIVE: CASE EVENT DATE: 20180124
